FAERS Safety Report 22032584 (Version 1)
Quarter: 2023Q1

REPORT INFORMATION
  Report Type: Report from Study
  Country: DE (occurrence: DE)
  Receive Date: 20230224
  Receipt Date: 20230224
  Transmission Date: 20230417
  Serious: Yes (Life-Threatening, Hospitalization, Other)
  Sender: FDA-Public Use
  Company Number: DE-JNJFOC-20230230144

PATIENT

DRUGS (11)
  1. RISPERDAL [Suspect]
     Active Substance: RISPERIDONE
     Indication: Product used for unknown indication
     Route: 065
  2. FLUOXETINE [Suspect]
     Active Substance: FLUOXETINE HYDROCHLORIDE
     Indication: Product used for unknown indication
     Route: 065
  3. SERTRALINE [Suspect]
     Active Substance: SERTRALINE HYDROCHLORIDE
     Indication: Product used for unknown indication
     Route: 065
  4. MIRTAZAPINE [Suspect]
     Active Substance: MIRTAZAPINE
     Indication: Product used for unknown indication
     Route: 065
  5. ARIPIPRAZOLE [Suspect]
     Active Substance: ARIPIPRAZOLE
     Indication: Product used for unknown indication
     Route: 065
  6. QUETIAPINE [Suspect]
     Active Substance: QUETIAPINE
     Indication: Product used for unknown indication
     Route: 065
  7. OLANZAPINE [Suspect]
     Active Substance: OLANZAPINE
     Indication: Product used for unknown indication
     Route: 065
  8. ATOMOXETINE [Concomitant]
     Active Substance: ATOMOXETINE
  9. GUANFACINE [Concomitant]
     Active Substance: GUANFACINE
  10. BIPERIDEN [Concomitant]
     Active Substance: BIPERIDEN
  11. MELATONIN [Concomitant]
     Active Substance: MELATONIN

REACTIONS (9)
  - Suicide attempt [Unknown]
  - Suicidal ideation [Unknown]
  - Mental disorder [Unknown]
  - Nervous system disorder [Unknown]
  - Lymphatic disorder [Unknown]
  - Blood disorder [Unknown]
  - Cardiac disorder [Unknown]
  - Endocrine disorder [Unknown]
  - Off label use [Unknown]
